FAERS Safety Report 15786837 (Version 5)
Quarter: 2019Q1

REPORT INFORMATION
  Report Type: Spontaneous
  Country: US (occurrence: US)
  Receive Date: 20190103
  Receipt Date: 20190201
  Transmission Date: 20190417
  Serious: No
  Sender: FDA-Public Use
  Company Number: US-PFIZER INC-2018534543

PATIENT
  Age: 91 Year
  Sex: Female

DRUGS (1)
  1. THROMBIN [Suspect]
     Active Substance: THROMBIN
     Indication: HAEMORRHAGE PROPHYLAXIS
     Dosage: UNK
     Route: 061

REACTIONS (1)
  - Coagulation factor decreased [Unknown]
